FAERS Safety Report 11516141 (Version 1)
Quarter: 2015Q3

REPORT INFORMATION
  Report Type: Spontaneous
  Country: FR (occurrence: FR)
  Receive Date: 20150917
  Receipt Date: 20150917
  Transmission Date: 20151125
  Serious: Yes (Other)
  Sender: FDA-Public Use
  Company Number: FR-ASTRAZENECA-2015SE88166

PATIENT
  Age: 213 Month
  Sex: Female

DRUGS (1)
  1. XEROQUEL [Suspect]
     Active Substance: QUETIAPINE FUMARATE
     Indication: SCHIZOPHRENIA
     Route: 048
     Dates: start: 20150907, end: 20150907

REACTIONS (8)
  - Speech disorder [Recovered/Resolved]
  - Headache [Recovered/Resolved]
  - Cyanopsia [Recovered/Resolved]
  - Lip swelling [Recovered/Resolved]
  - Asthenia [Recovered/Resolved]
  - Drug administered to patient of inappropriate age [Unknown]
  - Off label use [Recovered/Resolved]
  - Insomnia [Unknown]

NARRATIVE: CASE EVENT DATE: 201509
